FAERS Safety Report 21299483 (Version 1)
Quarter: 2022Q3

REPORT INFORMATION
  Report Type: Spontaneous
  Country: GB (occurrence: GB)
  Receive Date: 20220906
  Receipt Date: 20220906
  Transmission Date: 20221027
  Serious: Yes (Hospitalization, Other)
  Sender: FDA-Public Use
  Company Number: GB-MYLANLABS-2022M1091201

PATIENT
  Sex: Female

DRUGS (18)
  1. PREGABALIN [Suspect]
     Active Substance: PREGABALIN
     Indication: Back pain
     Dosage: 300 MILLIGRAM, BID (AT 24 WEEKS BEFORE ADMISSION)
     Route: 065
  2. PREGABALIN [Suspect]
     Active Substance: PREGABALIN
     Dosage: 300MG IN THE DAY TIME AND 200MG IN THE LATTER PART OF THE DAY (23 WEEKS?
     Route: 065
  3. PREGABALIN [Suspect]
     Active Substance: PREGABALIN
     Dosage: 300 MILLIGRAM, BID (16 WEEKS BEFORE ADMISSION)
     Route: 065
  4. PREGABALIN [Suspect]
     Active Substance: PREGABALIN
     Dosage: 250MG IN THE DAY TIME AND 200MG IN THE LATTER PART OF THE DAY (13 WEEKS?.
     Route: 065
  5. PREGABALIN [Suspect]
     Active Substance: PREGABALIN
     Dosage: 200 MILLIGRAM, BID (12 WEEKS BEFORE ADMISSION)
     Route: 065
  6. PREGABALIN [Suspect]
     Active Substance: PREGABALIN
     Dosage: 150MG IN THE DAY TIME AND 100MG IN THE LATTER PART OF THE DAY (9 WEEKS....
     Route: 065
  7. PREGABALIN [Suspect]
     Active Substance: PREGABALIN
     Dosage: 50 MILLIGRAM, BID (7 WEEKS BEFORE ADMISSION)
     Route: 065
  8. PREGABALIN [Suspect]
     Active Substance: PREGABALIN
     Dosage: 50 MILLIGRAM, QD (AT 5-6 WEEKS BEFORE ADMISSION)
     Route: 065
  9. OLANZAPINE [Suspect]
     Active Substance: OLANZAPINE
     Indication: Major depression
     Dosage: 5 MILLIGRAM, QD
     Route: 065
  10. MIRTAZAPINE [Suspect]
     Active Substance: MIRTAZAPINE
     Indication: Major depression
     Dosage: 15 MILLIGRAM, QD
     Route: 065
  11. MIRTAZAPINE [Suspect]
     Active Substance: MIRTAZAPINE
     Dosage: DOSE OF MIRTAZAPINE WAS INCREASED TO 30MG ONCE DAILY
     Route: 065
  12. NORTRIPTYLINE [Suspect]
     Active Substance: NORTRIPTYLINE
     Indication: Back pain
     Dosage: UNK
     Route: 065
  13. DULOXETINE [Suspect]
     Active Substance: DULOXETINE
     Indication: Back pain
     Dosage: UNK
     Route: 065
  14. AMITRIPTYLINE [Suspect]
     Active Substance: AMITRIPTYLINE
     Indication: Back pain
     Dosage: UNK
     Route: 065
  15. THIAMINE [Concomitant]
     Active Substance: THIAMINE
     Indication: Vitamin supplementation
     Dosage: UNK
     Route: 042
  16. LEVOTHYROXINE [Concomitant]
     Active Substance: LEVOTHYROXINE
     Indication: Hypothyroidism
     Dosage: 75 MILLIGRAM, QD
     Route: 065
  17. ACETAMINOPHEN [Concomitant]
     Active Substance: ACETAMINOPHEN
     Indication: Back pain
     Dosage: 1 GRAM, QID
     Route: 065
  18. CANDESARTAN CILEXETIL [Concomitant]
     Active Substance: CANDESARTAN CILEXETIL
     Indication: Product used for unknown indication
     Dosage: 2 MILLIGRAM, QD
     Route: 065

REACTIONS (8)
  - Major depression [Recovered/Resolved]
  - Withdrawal syndrome [Recovered/Resolved]
  - Drug ineffective [Unknown]
  - Hallucination [Unknown]
  - Constipation [Unknown]
  - Nausea [Unknown]
  - Hyperhidrosis [Unknown]
  - Off label use [Unknown]
